FAERS Safety Report 16414000 (Version 1)
Quarter: 2019Q2

REPORT INFORMATION
  Report Type: Spontaneous
  Country: US (occurrence: US)
  Receive Date: 20190611
  Receipt Date: 20190611
  Transmission Date: 20190711
  Serious: No
  Sender: FDA-Public Use
  Company Number: US-MYLANLABS-2019M1049674

PATIENT
  Sex: Female
  Weight: 62 kg

DRUGS (1)
  1. PREDNISONE TABLETS USP [Suspect]
     Active Substance: PREDNISONE
     Indication: PSEUDOMONAS INFECTION
     Dosage: 6 DOSAGE FORM, QD (WEANING OFF EVERY 4 DAYS)
     Route: 048

REACTIONS (1)
  - Weight decreased [Not Recovered/Not Resolved]
